FAERS Safety Report 8052225 (Version 19)
Quarter: 2017Q4

REPORT INFORMATION
  Report Type: Report from Study
  Country: CA (occurrence: CA)
  Receive Date: 20110725
  Receipt Date: 20171225
  Transmission Date: 20180321
  Serious: Yes (Hospitalization, Other)
  Sender: FDA-Public Use
  Company Number: PHHY2011CA33369

PATIENT
  Age: 59 Year
  Sex: Male

DRUGS (5)
  1. CARVEDILOL. [Suspect]
     Active Substance: CARVEDILOL
     Dosage: 12.5 (1 TABLET) BID (2 TIMES PER DAY)
     Route: 065
     Dates: start: 20151016
  2. SANDOSTATIN LAR DEPOT [Suspect]
     Active Substance: OCTREOTIDE ACETATE
     Indication: PITUITARY TUMOUR BENIGN
     Dosage: 20 MG, QMO (EVERY 4 WEEKS)
     Route: 030
     Dates: start: 20080620
  3. CARVEDILOL. [Suspect]
     Active Substance: CARVEDILOL
     Indication: PRODUCT USED FOR UNKNOWN INDICATION
     Dosage: 6.25 MG BID (2 TIMES PER DAY)
     Route: 065
  4. CARVEDILOL. [Suspect]
     Active Substance: CARVEDILOL
     Dosage: 6.25 MG, BID (2 TIMES PER DAY)
     Route: 065
  5. SANDOSTATIN [Suspect]
     Active Substance: OCTREOTIDE ACETATE
     Indication: PITUITARY TUMOUR BENIGN
     Route: 058
     Dates: end: 20080629

REACTIONS (21)
  - Blood pressure decreased [Unknown]
  - Rhinorrhoea [Unknown]
  - Haemoglobin decreased [Unknown]
  - Face injury [Unknown]
  - Blood pressure systolic increased [Unknown]
  - Chest pain [Unknown]
  - Cough [Recovered/Resolved]
  - Body temperature decreased [Unknown]
  - Influenza [Unknown]
  - Haemorrhoidal haemorrhage [Unknown]
  - Myocardial infarction [Unknown]
  - Nasopharyngitis [Unknown]
  - Dysphonia [Recovered/Resolved]
  - Accident [Unknown]
  - Heart rate decreased [Unknown]
  - Dyspnoea [Unknown]
  - Blood pressure diastolic decreased [Unknown]
  - Nasal congestion [Unknown]
  - Coronary artery occlusion [Unknown]
  - Influenza [Recovered/Resolved]
  - Cough [Unknown]

NARRATIVE: CASE EVENT DATE: 20110322
